FAERS Safety Report 14867796 (Version 1)
Quarter: 2018Q2

REPORT INFORMATION
  Report Type: Spontaneous
  Country: ES (occurrence: ES)
  Receive Date: 20180509
  Receipt Date: 20180509
  Transmission Date: 20180711
  Serious: Yes (Hospitalization, Other)
  Sender: FDA-Public Use
  Company Number: ES-ALVOGEN-2018-ALVOGEN-096067

PATIENT
  Sex: Female

DRUGS (9)
  1. EVEROLIMUS. [Suspect]
     Active Substance: EVEROLIMUS
     Indication: HORMONE THERAPY
     Dosage: ()
     Dates: start: 201509
  2. BOSENTAN. [Concomitant]
     Active Substance: BOSENTAN
     Indication: PRODUCT USED FOR UNKNOWN INDICATION
  3. SILDENAFIL. [Concomitant]
     Active Substance: SILDENAFIL
     Indication: PRODUCT USED FOR UNKNOWN INDICATION
  4. PARACETAMOL/TRAMADOL HYDROCHLORIDE [Concomitant]
     Indication: PRODUCT USED FOR UNKNOWN INDICATION
     Dosage: AS NEEDED () ; AS NECESSARY
  5. IBUPROFEN. [Concomitant]
     Active Substance: IBUPROFEN
     Indication: PRODUCT USED FOR UNKNOWN INDICATION
     Dosage: AS NEEDED () ; AS NECESSARY
  6. EXEMESTANE. [Suspect]
     Active Substance: EXEMESTANE
     Indication: HORMONE THERAPY
     Dosage: ()
     Dates: start: 201509
  7. OMEPRAZOLE. [Concomitant]
     Active Substance: OMEPRAZOLE
     Indication: PRODUCT USED FOR UNKNOWN INDICATION
  8. EVEROLIMUS. [Suspect]
     Active Substance: EVEROLIMUS
     Indication: HORMONE THERAPY
     Dosage: REDUCED DOSE ()
     Dates: end: 201602
  9. ZOLEDRONIC ACID [Concomitant]
     Active Substance: ZOLEDRONIC ACID
     Indication: INVASIVE DUCTAL BREAST CARCINOMA
     Dosage: ()
     Dates: start: 201509

REACTIONS (5)
  - Epistaxis [Unknown]
  - Anaemia [Unknown]
  - Toxicity to various agents [Unknown]
  - Haemorrhage [Unknown]
  - Pneumonitis [Unknown]
